FAERS Safety Report 18289052 (Version 2)
Quarter: 2020Q4

REPORT INFORMATION
  Report Type: Spontaneous
  Country: DE (occurrence: DE)
  Receive Date: 20200921
  Receipt Date: 20201113
  Transmission Date: 20210113
  Serious: Yes (Death, Other)
  Sender: FDA-Public Use
  Company Number: DE-KYOWAKIRIN-2020BKK015091

PATIENT

DRUGS (1)
  1. CRYSVITA [Suspect]
     Active Substance: BUROSUMAB-TWZA
     Indication: HEREDITARY HYPOPHOSPHATAEMIC RICKETS
     Dosage: UNK
     Route: 065

REACTIONS (5)
  - Disease progression [Unknown]
  - Respiration abnormal [Unknown]
  - Death [Fatal]
  - Renal impairment [Unknown]
  - Paraplegia [Unknown]

NARRATIVE: CASE EVENT DATE: 20200130
